FAERS Safety Report 16387869 (Version 1)
Quarter: 2019Q2

REPORT INFORMATION
  Report Type: Spontaneous
  Country: BE (occurrence: BE)
  Receive Date: 20190604
  Receipt Date: 20190604
  Transmission Date: 20190711
  Serious: Yes (Disabling)
  Sender: FDA-Public Use
  Company Number: BE-BAYER-2019-102795

PATIENT
  Sex: Female

DRUGS (1)
  1. MIRENA [Suspect]
     Active Substance: LEVONORGESTREL
     Dosage: 20 MCG/24HR, CONT
     Route: 015

REACTIONS (5)
  - Obsessive thoughts [Recovering/Resolving]
  - Hypoglycaemia [Recovering/Resolving]
  - Neurological symptom [Recovering/Resolving]
  - Anxiety [Recovering/Resolving]
  - Weight decreased [Recovering/Resolving]
